FAERS Safety Report 24373150 (Version 1)
Quarter: 2024Q3

REPORT INFORMATION
  Report Type: Spontaneous
  Country: TH (occurrence: TH)
  Receive Date: 20240927
  Receipt Date: 20240927
  Transmission Date: 20241017
  Serious: Yes (Life-Threatening, Hospitalization)
  Sender: JOHNSON AND JOHNSON
  Company Number: TH-MLMSERVICE-20240913-PI192182-00285-1

PATIENT
  Age: 13 Year
  Sex: Female

DRUGS (5)
  1. HALDOL [Suspect]
     Active Substance: HALOPERIDOL
     Indication: Autism spectrum disorder
     Route: 065
  2. TOPAMAX [Suspect]
     Active Substance: TOPIRAMATE
     Indication: Autism spectrum disorder
     Route: 065
  3. RISPERDAL [Suspect]
     Active Substance: RISPERIDONE
     Indication: Autism spectrum disorder
     Route: 065
  4. DIAZEPAM [Suspect]
     Active Substance: DIAZEPAM
     Indication: Autism spectrum disorder
     Route: 065
  5. TRIHEXYPHENIDYL [Suspect]
     Active Substance: TRIHEXYPHENIDYL
     Indication: Autism spectrum disorder
     Route: 065

REACTIONS (1)
  - Rhabdomyolysis [Recovered/Resolved]
